FAERS Safety Report 24944386 (Version 1)
Quarter: 2025Q1

REPORT INFORMATION
  Report Type: Spontaneous
  Country: US (occurrence: US)
  Receive Date: 20250208
  Receipt Date: 20250208
  Transmission Date: 20250409
  Serious: No
  Sender: JOHNSON AND JOHNSON
  Company Number: US-ABBVIE-6118468

PATIENT
  Sex: Male

DRUGS (1)
  1. IMBRUVICA [Suspect]
     Active Substance: IBRUTINIB
     Indication: Chronic lymphocytic leukaemia
     Route: 048

REACTIONS (4)
  - Nasopharyngitis [Unknown]
  - Productive cough [Unknown]
  - Seasonal allergy [Unknown]
  - Sneezing [Unknown]

NARRATIVE: CASE EVENT DATE: 20241201
